FAERS Safety Report 4385325-0 (Version None)
Quarter: 2004Q2

REPORT INFORMATION
  Report Type: 
  Country: None (occurrence: None)
  Receive Date: 20040622
  Receipt Date: 20040607
  Transmission Date: 20050107
  Serious: Yes (Life-Threatening, Hospitalization)
  Sender: FDA-Public Use
  Company Number: FR-JNJFOC-20040601741

PATIENT
  Age: 42 Year
  Sex: Female
  Weight: 71 kg

DRUGS (7)
  1. REMICADE [Suspect]
     Indication: RHEUMATOID ARTHRITIS
     Dosage: 200 MG, INTRAVENOUS
     Route: 042
     Dates: start: 20030310, end: 20040401
  2. TRANXENE [Concomitant]
  3. IMOVANE (ZOPICLONE) TABLETS [Concomitant]
  4. PROZAC (FLUOXETINE HYDROCHLORIDE) CAPSULES [Concomitant]
  5. FOLIC ACID [Concomitant]
  6. PARACETAMOL (PARACETAMOL) [Concomitant]
  7. METRONIDAZOLE [Concomitant]

REACTIONS (1)
  - BIPOLAR I DISORDER [None]
